FAERS Safety Report 5828053-4 (Version None)
Quarter: 2008Q3

REPORT INFORMATION
  Report Type: 
  Country: None (occurrence: None)
  Receive Date: 20080730
  Receipt Date: 20080117
  Transmission Date: 20090109
  Serious: No
  Sender: FDA-Public Use
  Company Number: A0703885A

PATIENT
  Age: 69 Year
  Sex: Female

DRUGS (2)
  1. RANITIDINE HCL [Suspect]
     Route: 048
     Dates: start: 19950101
  2. NO CONCURRENT MEDICATION [Concomitant]

REACTIONS (4)
  - CHEST PAIN [None]
  - RASH [None]
  - SENSORY DISTURBANCE [None]
  - THERAPEUTIC RESPONSE UNEXPECTED [None]
